APPROVED DRUG PRODUCT: INPEFA
Active Ingredient: SOTAGLIFLOZIN
Strength: 200MG
Dosage Form/Route: TABLET;ORAL
Application: N216203 | Product #001
Applicant: LEXICON PHARMACEUTICALS INC
Approved: May 26, 2023 | RLD: Yes | RS: No | Type: RX

PATENTS:
Patent 8476413 | Expires: May 29, 2028
Patent 7781577 | Expires: May 4, 2028
Patent 8217156 | Expires: Oct 7, 2030

EXCLUSIVITY:
Code: NCE | Date: May 26, 2028